FAERS Safety Report 8352056-1 (Version None)
Quarter: 2012Q2

REPORT INFORMATION
  Report Type: 
  Country: None (occurrence: None)
  Receive Date: 20120509
  Receipt Date: 20120509
  Transmission Date: 20120825
  Serious: Yes (Life-Threatening, Other)
  Sender: FDA-Public Use
  Company Number: None

PATIENT
  Age: 70 Year
  Sex: Female
  Weight: 55.3388 kg

DRUGS (2)
  1. QVAR 80 [Suspect]
     Indication: COUGH
     Dates: start: 20120202, end: 20120508
  2. QVAR 80 [Suspect]
     Indication: DYSPNOEA
     Dates: start: 20120202, end: 20120508

REACTIONS (4)
  - RESPIRATORY COMPLICATION ASSOCIATED WITH DEVICE [None]
  - DYSPNOEA [None]
  - COUGH [None]
  - DEVICE ISSUE [None]
